FAERS Safety Report 7045720-8 (Version None)
Quarter: 2010Q4

REPORT INFORMATION
  Report Type: 
  Country: None (occurrence: None)
  Receive Date: 20101013
  Receipt Date: 20101013
  Transmission Date: 20110411
  Serious: Yes (Other)
  Sender: FDA-Public Use
  Company Number: None

PATIENT
  Sex: Female
  Weight: 85.2762 kg

DRUGS (5)
  1. RITUXAN [Suspect]
     Indication: RHEUMATOID ARTHRITIS
     Dosage: 1000 MG IV DAY 1 AND 15
     Route: 042
     Dates: start: 20100924
  2. RITUXAN [Suspect]
  3. ACETAMINOPHEN [Concomitant]
  4. BENADRYL [Concomitant]
  5. SOLU-MEDROL [Concomitant]

REACTIONS (2)
  - FLUSHING [None]
  - URTICARIA [None]
